FAERS Safety Report 14038692 (Version 1)
Quarter: 2017Q4

REPORT INFORMATION
  Report Type: Spontaneous
  Country: GB (occurrence: GB)
  Receive Date: 20171004
  Receipt Date: 20171004
  Transmission Date: 20180321
  Serious: Yes (Other)
  Sender: FDA-Public Use
  Company Number: GB-BAYER-2017-189632

PATIENT
  Age: 29 Year
  Sex: Female
  Weight: 48 kg

DRUGS (4)
  1. AMITRIPTYLINE HYDROCHLORIDE. [Concomitant]
     Active Substance: AMITRIPTYLINE HYDROCHLORIDE
     Dosage: 1 DF, QD
     Dates: start: 20170913
  2. NAPROXEN SODIUM ({= 220 MG) [Suspect]
     Active Substance: NAPROXEN SODIUM
     Dosage: UNK
     Dates: start: 20170923
  3. OTEX [Concomitant]
     Dosage: 1 DF, BID
     Dates: start: 20170818, end: 20170821
  4. COCODAMOL [Concomitant]
     Active Substance: ACETAMINOPHEN\CODEINE PHOSPHATE
     Dosage: 2 DF, QID
     Dates: start: 20170913

REACTIONS (4)
  - Nausea [Unknown]
  - Gastritis [Unknown]
  - Haematemesis [Recovered/Resolved]
  - Vomiting [Unknown]

NARRATIVE: CASE EVENT DATE: 20170923
